FAERS Safety Report 23995092 (Version 1)
Quarter: 2024Q2

REPORT INFORMATION
  Report Type: Spontaneous
  Country: US (occurrence: US)
  Receive Date: 20240620
  Receipt Date: 20240620
  Transmission Date: 20240716
  Serious: No
  Sender: FDA-Public Use
  Company Number: US-ELI_LILLY_AND_COMPANY-US202406013617

PATIENT
  Age: 64 Year
  Sex: Male

DRUGS (1)
  1. INSULIN LISPRO [Suspect]
     Active Substance: INSULIN LISPRO
     Indication: Product used for unknown indication
     Dosage: 9 U, PRN (3-4 UNITS 4 TIMES A DAY UP TO 8 OR 9 ON SLIDING SCALE)
     Route: 065
     Dates: start: 202403

REACTIONS (1)
  - Accidental underdose [Unknown]
